FAERS Safety Report 13274334 (Version 1)
Quarter: 2017Q1

REPORT INFORMATION
  Report Type: Report from Study
  Country: US (occurrence: US)
  Receive Date: 20170227
  Receipt Date: 20170227
  Transmission Date: 20170428
  Serious: Yes (Hospitalization, Other)
  Sender: FDA-Public Use
  Company Number: US-CELGENEUS-163-21880-12120895

PATIENT

DRUGS (6)
  1. DEXAMETHASONE. [Suspect]
     Active Substance: DEXAMETHASONE
     Dosage: 10 MILLIGRAM
     Route: 048
  2. DEXAMETHASONE. [Suspect]
     Active Substance: DEXAMETHASONE
     Indication: PLASMA CELL MYELOMA
     Dosage: 20 MILLIGRAM
     Route: 041
  3. MELPHALAN [Concomitant]
     Active Substance: MELPHALAN
     Indication: PRODUCT USED FOR UNKNOWN INDICATION
     Route: 065
  4. REVLIMID [Suspect]
     Active Substance: LENALIDOMIDE
     Dosage: 10 MILLIGRAM
     Route: 048
  5. REVLIMID [Suspect]
     Active Substance: LENALIDOMIDE
     Indication: PLASMA CELL MYELOMA
     Dosage: 25 MILLIGRAM
     Route: 048
  6. CARFILZOMIB [Suspect]
     Active Substance: CARFILZOMIB
     Indication: PLASMA CELL MYELOMA
     Dosage: 20/36 MG/M2
     Route: 041

REACTIONS (41)
  - Unevaluable event [Unknown]
  - Inner ear disorder [Unknown]
  - Hypophosphataemia [Unknown]
  - Alanine aminotransferase increased [Unknown]
  - Syncope [Unknown]
  - Diarrhoea [Unknown]
  - Metabolic disorder [Unknown]
  - Affective disorder [Unknown]
  - Cardiac disorder [Unknown]
  - Cardiac failure congestive [Unknown]
  - Cognitive disorder [Unknown]
  - Hypertension [Unknown]
  - Hypoalbuminaemia [Unknown]
  - Skin disorder [Unknown]
  - Embolism venous [Unknown]
  - Neuropathy peripheral [Unknown]
  - Dyspnoea [Unknown]
  - Musculoskeletal disorder [Unknown]
  - Endocrine disorder [Unknown]
  - Infection [Unknown]
  - Infusion related reaction [Unknown]
  - Angiopathy [Unknown]
  - Anxiety [Unknown]
  - Neutropenia [Unknown]
  - Renal impairment [Unknown]
  - Lung infection [Unknown]
  - Pleural effusion [Unknown]
  - Lung disorder [Unknown]
  - Eye disorder [Unknown]
  - Lymphopenia [Unknown]
  - Leukopenia [Unknown]
  - Anaemia [Unknown]
  - Hepatobiliary disease [Unknown]
  - Gastrointestinal disorder [Unknown]
  - Haemorrhage [Unknown]
  - Rash [Unknown]
  - Thrombocytopenia [Unknown]
  - Genitourinary symptom [Unknown]
  - Rash maculo-papular [Unknown]
  - Hyponatraemia [Unknown]
  - Fatigue [Unknown]
